FAERS Safety Report 8464852-0 (Version None)
Quarter: 2012Q2

REPORT INFORMATION
  Report Type: 
  Country: None (occurrence: None)
  Receive Date: 20120618
  Receipt Date: 20120531
  Transmission Date: 20120825
  Serious: Yes (Other)
  Sender: FDA-Public Use
  Company Number: FK201201524

PATIENT
  Age: 20 Year
  Sex: Female

DRUGS (2)
  1. DEXAMETHASONE SODIUM PHOSPHATE [Suspect]
     Indication: OFF LABEL USE
     Dosage: 4 MG, 1 IN 1 D  : 4 MG, 2 IN 1 D
  2. DEXAMETHASONE SODIUM PHOSPHATE [Suspect]
     Indication: OFF LABEL USE
     Dosage: 4 MG, 1 IN 1 D  : 4 MG, 2 IN 1 D

REACTIONS (8)
  - CATATONIA [None]
  - SELECTIVE MUTISM [None]
  - POSTURE ABNORMAL [None]
  - PSYCHOTIC DISORDER [None]
  - MUSCLE RIGIDITY [None]
  - NEUROLEPTIC MALIGNANT SYNDROME [None]
  - SOCIAL AVOIDANT BEHAVIOUR [None]
  - ABNORMAL BEHAVIOUR [None]
